FAERS Safety Report 14027457 (Version 1)
Quarter: 2017Q3

REPORT INFORMATION
  Report Type: Spontaneous
  Country: BG (occurrence: BG)
  Receive Date: 20170929
  Receipt Date: 20170929
  Transmission Date: 20171128
  Serious: Yes (Other)
  Sender: FDA-Public Use
  Company Number: BG-ACCORD-059202

PATIENT
  Age: 43 Year
  Sex: Female

DRUGS (3)
  1. FLUOROURACIL. [Suspect]
     Active Substance: FLUOROURACIL
     Indication: AMELOBLASTOMA
     Dosage: ON DAY 1-4 (3 WK)
     Dates: start: 2016
  2. PEGFILGRASTIM [Concomitant]
     Active Substance: PEGFILGRASTIM
     Dates: start: 2016
  3. CISPLATIN. [Suspect]
     Active Substance: CISPLATIN
     Indication: AMELOBLASTOMA
     Dosage: ON DAY 1
     Dates: start: 2016

REACTIONS (3)
  - Platelet count decreased [Unknown]
  - Neutropenia [Unknown]
  - Bone marrow failure [Unknown]
